FAERS Safety Report 9893863 (Version 2)
Quarter: 2014Q2

REPORT INFORMATION
  Report Type: Spontaneous
  Country: US (occurrence: US)
  Receive Date: 20140213
  Receipt Date: 20140425
  Transmission Date: 20141212
  Serious: Yes (Other)
  Sender: FDA-Public Use
  Company Number: US-ELI_LILLY_AND_COMPANY-US201402002872

PATIENT
  Age: 33 Year
  Sex: Male
  Weight: 83 kg

DRUGS (14)
  1. FORTEO [Suspect]
     Indication: HYPOPARATHYROIDISM
     Dosage: 20 UG, QD
     Route: 065
     Dates: start: 20140203, end: 20140206
  2. ASPIRIN [Concomitant]
     Dosage: 81 MG, QD
     Route: 048
  3. CALCIUM CITRATE [Concomitant]
     Dosage: 4750 MG, QID
     Route: 048
  4. CALCIUM [Concomitant]
     Dosage: 2500 MG, QD
     Route: 048
  5. DILTIAZEM [Concomitant]
     Dosage: 180 MG, BID
     Route: 048
  6. DOXAZOSIN [Concomitant]
     Dosage: 2 MG, EACH EVENING
     Route: 048
  7. ESOMEPRAZOLE [Concomitant]
     Dosage: UNK
  8. MYCOPHENOLATE [Concomitant]
     Dosage: 360 MG, BID
     Route: 048
  9. PRAVASTATIN [Concomitant]
     Dosage: 40 MG, QD
     Route: 048
  10. PREDNISONE [Concomitant]
     Dosage: 10 MG, QOD
     Route: 048
  11. SIROLIMUS [Concomitant]
     Dosage: 1 MG, QD
     Route: 048
  12. VALSARTAN [Concomitant]
     Dosage: 160 MG, QD
     Route: 048
  13. VITAMIN D [Concomitant]
     Dosage: 50000 U, 5/W
     Route: 048
  14. MAGNESIUM OXIDE [Concomitant]
     Dosage: 400 MG, QD
     Route: 048

REACTIONS (4)
  - Intracranial pressure increased [Recovering/Resolving]
  - Sleep apnoea syndrome [Recovering/Resolving]
  - Off label use [Unknown]
  - Drug prescribing error [Unknown]
